FAERS Safety Report 6730531-0 (Version None)
Quarter: 2010Q2

REPORT INFORMATION
  Report Type: 
  Country: None (occurrence: None)
  Receive Date: 20100514
  Receipt Date: 20100503
  Transmission Date: 20101027
  Serious: Yes (Other)
  Sender: FDA-Public Use
  Company Number: 1000013769

PATIENT
  Age: 76 Year
  Sex: Female

DRUGS (2)
  1. LEVOTHROID [Suspect]
     Indication: HYPOTHYROIDISM
  2. METHYLPREDNISOLONE [Suspect]
     Indication: ENDOCRINE OPHTHALMOPATHY
     Dosage: 1 GM (1GM, 1 IN 1D), INTRAVENOUS
     Route: 042
     Dates: start: 20030901

REACTIONS (10)
  - ACUTE MYOCARDIAL INFARCTION [None]
  - BUNDLE BRANCH BLOCK LEFT [None]
  - COLOUR BLINDNESS ACQUIRED [None]
  - CONJUNCTIVAL OEDEMA [None]
  - DIPLOPIA [None]
  - ENDOCRINE OPHTHALMOPATHY [None]
  - EXOPHTHALMOS [None]
  - EYELID OEDEMA [None]
  - SWELLING [None]
  - VISUAL ACUITY REDUCED [None]
